FAERS Safety Report 4524038-9 (Version None)
Quarter: 2004Q4

REPORT INFORMATION
  Report Type: 
  Country: None (occurrence: None)
  Receive Date: 20041209
  Receipt Date: 20041117
  Transmission Date: 20050328
  Serious: Yes (Other)
  Sender: FDA-Public Use
  Company Number: 2004-DE-05956GD

PATIENT

DRUGS (2)
  1. NEVIRAPINE (NEVIRAPINE) (NEVIRAPINE) [Suspect]
     Indication: HIV INFECTION
     Dosage: INITIAL DOSE OF 200 MG/D FOR 14 DAYS, FOLLOWED BY 200 MG TWICE DAILY, PO
     Route: 048
  2. OPIATE (OPIATE) [Suspect]

REACTIONS (1)
  - DRUG WITHDRAWAL SYNDROME [None]
